FAERS Safety Report 8914005 (Version 2)
Quarter: 2013Q2

REPORT INFORMATION
  Report Type: Spontaneous
  Country: US (occurrence: US)
  Receive Date: 20121119
  Receipt Date: 20130513
  Transmission Date: 20140414
  Serious: Yes (Hospitalization)
  Sender: FDA-Public Use
  Company Number: US-BAYER-2012-118461

PATIENT
  Age: 37 Year
  Sex: Female
  Weight: 102.95 kg

DRUGS (7)
  1. YAZ [Suspect]
  2. GIANVI [Suspect]
  3. OCELLA [Suspect]
  4. METFORMIN [Concomitant]
     Indication: DIABETES MELLITUS
     Dosage: 500 MG, TID
  5. HYDROCHLOROTHIAZIDE [Concomitant]
     Indication: HYPERTENSION
     Dosage: 25 MG, DAILY
  6. SYNTHROID [Concomitant]
     Dosage: 75 MCG DAILY
  7. PERCOCET [Concomitant]

REACTIONS (1)
  - Deep vein thrombosis [None]
